FAERS Safety Report 9801152 (Version 2)
Quarter: 2015Q1

REPORT INFORMATION
  Report Type: Spontaneous
  Country: US (occurrence: US)
  Receive Date: 20140107
  Receipt Date: 20150127
  Transmission Date: 20150721
  Serious: Yes (Other)
  Sender: FDA-Public Use
  Company Number: US-PFIZER INC-2014000013

PATIENT
  Age: 50 Year
  Sex: Female

DRUGS (7)
  1. SANDOSTATIN [Concomitant]
     Active Substance: OCTREOTIDE ACETATE
     Dosage: UNK
  2. SYNTHROID [Concomitant]
     Active Substance: LEVOTHYROXINE SODIUM
     Dosage: UNK
  3. METFORMIN [Concomitant]
     Active Substance: METFORMIN HYDROCHLORIDE
  4. SOMAVERT [Suspect]
     Active Substance: PEGVISOMANT
     Indication: ACROMEGALY
     Dosage: 10 MG, 1X/DAY
     Route: 058
     Dates: start: 201308
  5. SPIRONOLACTONE. [Concomitant]
     Active Substance: SPIRONOLACTONE
     Dosage: UNK
  6. ZANTAC [Concomitant]
     Active Substance: RANITIDINE HYDROCHLORIDE
     Dosage: UNK
  7. CABERGOLINE. [Concomitant]
     Active Substance: CABERGOLINE
     Dosage: UNK

REACTIONS (12)
  - Swollen tongue [Unknown]
  - Pruritus [Unknown]
  - Laboratory test abnormal [Unknown]
  - Blood growth hormone increased [Unknown]
  - Paraesthesia [Unknown]
  - Aphasia [Unknown]
  - Neoplasm [Unknown]
  - Disease progression [Unknown]
  - Gingival pain [Unknown]
  - Swelling [Unknown]
  - Amnesia [Unknown]
  - Anxiety [Unknown]

NARRATIVE: CASE EVENT DATE: 201308
